FAERS Safety Report 7524648-0 (Version None)
Quarter: 2011Q2

REPORT INFORMATION
  Report Type: 
  Country: None (occurrence: None)
  Receive Date: 20110606
  Receipt Date: 20110531
  Transmission Date: 20111010
  Serious: Yes (Other)
  Sender: FDA-Public Use
  Company Number: US-JNJFOC-20100108248

PATIENT
  Sex: Female

DRUGS (5)
  1. PREDNISONE [Suspect]
     Indication: ILL-DEFINED DISORDER
     Route: 048
     Dates: start: 20060201
  2. METHYLPREDNISOLONE [Suspect]
     Indication: ILL-DEFINED DISORDER
     Route: 042
     Dates: start: 20060228
  3. LEVAQUIN [Suspect]
     Indication: PNEUMONIA
     Route: 048
     Dates: start: 20060418, end: 20060428
  4. LEVAQUIN [Suspect]
     Route: 048
     Dates: start: 20060203, end: 20060217
  5. LEVAQUIN [Suspect]
     Route: 048
     Dates: start: 20061025, end: 20061108

REACTIONS (7)
  - TENDON RUPTURE [None]
  - TENDONITIS [None]
  - PERIARTHRITIS [None]
  - TENOSYNOVITIS [None]
  - TENOSYNOVITIS STENOSANS [None]
  - JOINT INJURY [None]
  - TENDON DISORDER [None]
